FAERS Safety Report 8041249-9 (Version None)
Quarter: 2012Q1

REPORT INFORMATION
  Report Type: 
  Country: None (occurrence: None)
  Receive Date: 20120112
  Receipt Date: 20120106
  Transmission Date: 20120608
  Serious: No
  Sender: FDA-Public Use
  Company Number: US-PFIZER INC-2011177445

PATIENT
  Sex: Female

DRUGS (3)
  1. CELEBREX [Suspect]
     Dosage: UNK (100 TO 200 MG)
  2. CELEBREX [Suspect]
     Dosage: 200 MG, UNK
  3. NEURONTIN [Suspect]
     Dosage: 300 MG, 1X/DAY

REACTIONS (1)
  - DRUG INEFFECTIVE [None]
